FAERS Safety Report 18254241 (Version 11)
Quarter: 2021Q2

REPORT INFORMATION
  Report Type: Report from Study
  Country: PL (occurrence: PL)
  Receive Date: 20200911
  Receipt Date: 20210623
  Transmission Date: 20210717
  Serious: Yes (Death, Life-Threatening, Hospitalization)
  Sender: FDA-Public Use
  Company Number: PL-ROCHE-2666716

PATIENT
  Age: 51 Year
  Sex: Female
  Weight: 62 kg

DRUGS (87)
  1. PLACEBO [Suspect]
     Active Substance: UNSPECIFIED INGREDIENT
     Indication: RELAPSING-REMITTING MULTIPLE SCLEROSIS
     Dosage: BASELINE (WEEK 1)?ON DAYS 1 AND 15 FOR THE FIRST DOSE AND AS A SINGLE INFUSION FOR ALL SUBSEQUENT IN
     Route: 042
     Dates: start: 20120925, end: 20120925
  2. INTERFERON BETA?1A [Suspect]
     Active Substance: INTERFERON BETA-1A
     Indication: RELAPSING-REMITTING MULTIPLE SCLEROSIS
     Route: 058
     Dates: start: 20120925, end: 20121006
  3. OCRELIZUMAB. [Suspect]
     Active Substance: OCRELIZUMAB
     Dosage: OLE?WEEK 48
     Route: 042
     Dates: start: 20150721, end: 20150721
  4. OCRELIZUMAB. [Suspect]
     Active Substance: OCRELIZUMAB
     Dosage: OLE?WEEK 216
     Route: 042
     Dates: start: 20181008, end: 20181008
  5. KALDYUM [Concomitant]
     Active Substance: POTASSIUM CHLORIDE
     Indication: HYPOKALAEMIA
     Dates: start: 20190319
  6. BISOCARD [Concomitant]
     Active Substance: BISOPROLOL
     Indication: TACHYCARDIA PAROXYSMAL
     Dates: start: 20140111, end: 20140330
  7. ZOPICLONE [Concomitant]
     Active Substance: ZOPICLONE
     Indication: URINARY TRACT INFECTION
     Dates: start: 202008, end: 202008
  8. PARACETAMOL [Concomitant]
     Active Substance: ACETAMINOPHEN
     Dates: start: 20130312
  9. METHYLPREDNISOLONE. [Concomitant]
     Active Substance: METHYLPREDNISOLONE
     Indication: MULTIPLE SCLEROSIS RELAPSE
     Dates: start: 20120925, end: 20120925
  10. METHYLPREDNISOLONE. [Concomitant]
     Active Substance: METHYLPREDNISOLONE
     Dates: start: 20200124, end: 20200129
  11. PLACEBO [Suspect]
     Active Substance: UNSPECIFIED INGREDIENT
     Dosage: WEEK 48
     Route: 042
     Dates: start: 20130827, end: 20130827
  12. OCRELIZUMAB. [Suspect]
     Active Substance: OCRELIZUMAB
     Dosage: WEEK 2
     Route: 042
     Dates: start: 20140902, end: 20140902
  13. MARVELON [Concomitant]
     Active Substance: DESOGESTREL\ETHINYL ESTRADIOL
     Dates: start: 201105
  14. LOSARTIC [Concomitant]
     Active Substance: LOSARTAN POTASSIUM
     Indication: HYPERTENSION
     Dates: start: 20081013
  15. KALDYUM [Concomitant]
     Active Substance: POTASSIUM CHLORIDE
     Dates: start: 20200803, end: 20200812
  16. CLEXANE [Concomitant]
     Active Substance: ENOXAPARIN SODIUM
     Dates: start: 20200803, end: 20200812
  17. SPIRONOLAKTON [Concomitant]
     Active Substance: SPIRONOLACTONE
     Indication: HYPERTENSION
     Dates: start: 20200827, end: 20200903
  18. LAKCID FORTE [Concomitant]
     Dosage: 1 CAPSULE
     Dates: start: 20200822, end: 20200904
  19. DEVIKAP [Concomitant]
     Dosage: 4 DROPS
     Dates: start: 20200812, end: 20200903
  20. PHYTOMENADIONE [Concomitant]
     Active Substance: PHYTONADIONE
     Indication: HAEMORRHAGE
     Dates: start: 202009, end: 202009
  21. DIAZEPAM. [Concomitant]
     Active Substance: DIAZEPAM
     Indication: NEUROLOGICAL SYMPTOM
     Dates: start: 202008, end: 202008
  22. LORATADYNA [Concomitant]
     Dosage: 19/AUG/2014, 02/SEP/2014, 03/FEB/2015, 21/JUL/2015, 05/JAN/2016, 21/JUN/2016, 13/DEC/2016, 23/MAY/20
     Dates: start: 20140211
  23. PARACETAMOL [Concomitant]
     Active Substance: ACETAMINOPHEN
     Indication: PREMEDICATION
     Dates: start: 20121008
  24. OCRELIZUMAB. [Suspect]
     Active Substance: OCRELIZUMAB
     Indication: RELAPSING-REMITTING MULTIPLE SCLEROSIS
     Dosage: OLE?WEEK 0
     Route: 042
     Dates: start: 20140819, end: 20140819
  25. OCRELIZUMAB. [Suspect]
     Active Substance: OCRELIZUMAB
     Dosage: OLE?WEEK 144
     Route: 042
     Dates: start: 20170523, end: 20170523
  26. OCRELIZUMAB. [Suspect]
     Active Substance: OCRELIZUMAB
     Dosage: OLE?WEEK 192
     Route: 042
     Dates: start: 20180424, end: 20180424
  27. VIVACOR [CARVEDILOL] [Concomitant]
     Indication: HYPERTENSION
     Dates: start: 20160512
  28. MAGNE B6 [Concomitant]
     Active Substance: MAGNESIUM\PYRIDOXINE
     Indication: PROPHYLAXIS
     Dates: start: 20200523
  29. BACLOFEN. [Concomitant]
     Active Substance: BACLOFEN
     Dates: start: 20200509
  30. PREGABALIN. [Concomitant]
     Active Substance: PREGABALIN
     Dates: start: 20200509
  31. FRAXIPARINE [Concomitant]
     Active Substance: NADROPARIN CALCIUM
     Dates: start: 20200813, end: 20200904
  32. HALOPERIDOL. [Concomitant]
     Active Substance: HALOPERIDOL
     Dates: start: 20200824, end: 20200829
  33. POLSEN [Concomitant]
     Active Substance: ZOLPIDEM TARTRATE
     Indication: INSOMNIA
     Dates: start: 202008, end: 202008
  34. LORATADYNA [Concomitant]
     Dates: start: 20130312
  35. LORATADYNA [Concomitant]
     Dates: start: 20130827
  36. METHYLPREDNISOLONE. [Concomitant]
     Active Substance: METHYLPREDNISOLONE
     Dates: start: 20121008, end: 20121008
  37. PLACEBO [Suspect]
     Active Substance: UNSPECIFIED INGREDIENT
     Dosage: WEEK 24
     Route: 042
     Dates: start: 20130312, end: 20130312
  38. OCRELIZUMAB. [Suspect]
     Active Substance: OCRELIZUMAB
     Dosage: OLE?WEEK 96
     Route: 042
     Dates: start: 20160621, end: 20160621
  39. URO VAXOM [Concomitant]
     Active Substance: ESCHERICHIA COLI
     Indication: PROPHYLAXIS
     Dates: start: 20170220, end: 20170520
  40. URO VAXOM [Concomitant]
     Active Substance: ESCHERICHIA COLI
     Dates: start: 20170827
  41. XALATAN [Concomitant]
     Active Substance: LATANOPROST
     Indication: GLAUCOMA
     Dates: start: 2010
  42. BETASERC [Concomitant]
     Active Substance: BETAHISTINE
     Indication: HYPOACUSIS
     Dates: start: 20200309
  43. CONCOR COR [Concomitant]
     Active Substance: BISOPROLOL FUMARATE
     Indication: TACHYCARDIA PAROXYSMAL
     Dates: start: 20140401
  44. BISOCARD [Concomitant]
     Active Substance: BISOPROLOL
     Indication: PROPHYLAXIS
     Dates: start: 20200509
  45. PREGABALIN. [Concomitant]
     Active Substance: PREGABALIN
     Dates: start: 20200509
  46. HYDROXYZINUM [Concomitant]
     Active Substance: HYDROXYZINE HYDROCHLORIDE
     Dates: start: 20200812, end: 20200822
  47. PLACEBO [Suspect]
     Active Substance: UNSPECIFIED INGREDIENT
     Dosage: WEEK 72
     Route: 042
     Dates: start: 20140211, end: 20140211
  48. OCRELIZUMAB. [Suspect]
     Active Substance: OCRELIZUMAB
     Dosage: OLE?WEEK 168
     Route: 042
     Dates: start: 20171107, end: 20171107
  49. OCRELIZUMAB. [Suspect]
     Active Substance: OCRELIZUMAB
     Dosage: OLE?WEEK 240
     Route: 042
     Dates: start: 20190328, end: 20190328
  50. OCRELIZUMAB. [Suspect]
     Active Substance: OCRELIZUMAB
     Dosage: OLE?WEEK 264
     Route: 042
     Dates: start: 20190909, end: 20190909
  51. TERTENSIF [Concomitant]
     Active Substance: INDAPAMIDE
     Indication: HYPERTENSION
     Dates: start: 20160512
  52. BIOTRAKSON [Concomitant]
     Active Substance: CEFTRIAXONE SODIUM
     Indication: URINARY TRACT INFECTION
     Dates: start: 20200803, end: 20200807
  53. AMLODIPINE [Concomitant]
     Active Substance: AMLODIPINE BESYLATE
     Indication: HYPERTENSION
     Dates: start: 20200902, end: 20200903
  54. LORATADYNA [Concomitant]
     Dates: start: 20121008
  55. PARACETAMOL [Concomitant]
     Active Substance: ACETAMINOPHEN
     Indication: URINARY TRACT INFECTION
     Dates: start: 20120925
  56. SODIUM TETRABORATE [Concomitant]
  57. OCRELIZUMAB. [Suspect]
     Active Substance: OCRELIZUMAB
     Dosage: OLE?WEEK 24
     Route: 042
     Dates: start: 20150203, end: 20150203
  58. AMLOPIN [Concomitant]
     Dates: start: 20140614, end: 20140623
  59. KALDYUM [Concomitant]
     Active Substance: POTASSIUM CHLORIDE
     Dates: start: 20200124, end: 20200129
  60. TORASEMIDE [Concomitant]
     Active Substance: TORSEMIDE
     Indication: PERIPHERAL SWELLING
     Dates: start: 20190311
  61. FLUCOFAST [Concomitant]
     Indication: URINARY TRACT INFECTION
     Dates: start: 20200806, end: 20200810
  62. DORMICUM [MIDAZOLAM] [Concomitant]
     Active Substance: MIDAZOLAM HYDROCHLORIDE
     Indication: INSOMNIA
     Dates: start: 202008, end: 202008
  63. METHYLPREDNISOLONE. [Concomitant]
     Active Substance: METHYLPREDNISOLONE
     Dosage: 11/FEB/2014, 19/AUG/2014, 02/SEP/2014, 03/FEB/2015, 21/JUL/2015, 05/JAN/2016, 21/JUN/2016, 13/DEC/20
     Dates: start: 20130827, end: 20130827
  64. METHYLPREDNISOLONE. [Concomitant]
     Active Substance: METHYLPREDNISOLONE
     Dates: start: 20140618, end: 20140622
  65. FLUCONAZOLE. [Concomitant]
     Active Substance: FLUCONAZOLE
     Dates: start: 20200828, end: 20200901
  66. NACL [Concomitant]
     Active Substance: SODIUM CHLORIDE
     Dates: start: 20200812
  67. PLACEBO [Suspect]
     Active Substance: UNSPECIFIED INGREDIENT
     Dosage: WEEK 2
     Route: 042
     Dates: start: 20121008, end: 20121008
  68. OCRELIZUMAB. [Suspect]
     Active Substance: OCRELIZUMAB
     Dosage: OLE?WEEK 120
     Route: 042
     Dates: start: 20161213, end: 20161213
  69. OCRELIZUMAB. [Suspect]
     Active Substance: OCRELIZUMAB
     Dosage: OLE?WEEK 288
     Route: 042
     Dates: start: 20200218, end: 20200218
  70. AMLOPIN [Concomitant]
     Indication: HYPERTENSION
     Dates: start: 20140111, end: 20140613
  71. KALDYUM [Concomitant]
     Active Substance: POTASSIUM CHLORIDE
     Indication: PROPHYLAXIS
     Dates: start: 20160512
  72. AMOKSIKLAV [Concomitant]
     Active Substance: AMOXICILLIN\CLAVULANATE POTASSIUM
     Indication: URINARY TRACT INFECTION
     Dates: start: 20200807, end: 20200810
  73. PERFALGAN [Concomitant]
     Active Substance: ACETAMINOPHEN
     Dates: start: 20200812, end: 20200904
  74. DIUVER [Concomitant]
     Active Substance: TORSEMIDE
     Dates: start: 20200803, end: 20200904
  75. LERIVON [Concomitant]
     Active Substance: MIANSERIN HYDROCHLORIDE
     Indication: AFFECTIVE DISORDER
     Dates: start: 202008, end: 202008
  76. OCRELIZUMAB. [Suspect]
     Active Substance: OCRELIZUMAB
     Dosage: OLE?WEEK 72
     Route: 042
     Dates: start: 20160105, end: 20160105
  77. COSOPT [Concomitant]
     Active Substance: DORZOLAMIDE HYDROCHLORIDE\TIMOLOL MALEATE
     Indication: GLAUCOMA
     Dosage: 1 DROP
     Dates: start: 2010
  78. ALLOPURINOL. [Concomitant]
     Active Substance: ALLOPURINOL
     Indication: GOUT
     Dates: start: 20190319
  79. BETASERC [Concomitant]
     Active Substance: BETAHISTINE
     Indication: VERTIGO
     Dates: start: 20200803, end: 20200812
  80. AMLOPIN [Concomitant]
     Dates: start: 20140624
  81. MERONEM [Concomitant]
     Active Substance: MEROPENEM
     Indication: URINARY TRACT INFECTION
     Dates: start: 20200810, end: 20200819
  82. CONTROLOC [Concomitant]
     Active Substance: PANTOPRAZOLE SODIUM
     Dates: start: 20200824, end: 20200904
  83. CLONAZEPAM. [Concomitant]
     Active Substance: CLONAZEPAM
     Dates: start: 20200812, end: 20200822
  84. GADOTERIDOL [Concomitant]
     Active Substance: GADOTERIDOL
     Dates: start: 20200820, end: 20200820
  85. LORATADYNA [Concomitant]
     Indication: PREMEDICATION
     Dates: start: 20120925
  86. PARACETAMOL [Concomitant]
     Active Substance: ACETAMINOPHEN
     Dosage: 11/FEB/2014, 18/JUN/2014, 19/AUG/2014, 02/SEP/2014, 03/FEB/2015, 21/JUL/2015, 05/JAN/2016, 21/JUN/20
     Dates: start: 20130827
  87. METHYLPREDNISOLONE. [Concomitant]
     Active Substance: METHYLPREDNISOLONE
     Dates: start: 20130312, end: 20130312

REACTIONS (3)
  - Encephalitis [Not Recovered/Not Resolved]
  - COVID-19 [Fatal]
  - Neurological symptom [Not Recovered/Not Resolved]

NARRATIVE: CASE EVENT DATE: 20200722
